FAERS Safety Report 12276916 (Version 1)
Quarter: 2016Q2

REPORT INFORMATION
  Report Type: Spontaneous
  Country: None (occurrence: None)
  Receive Date: 20160415
  Receipt Date: 20160415
  Transmission Date: 20160815
  Serious: No
  Sender: FDA-Public Use
  Company Number: None

PATIENT
  Age: 52 Year
  Sex: Female

DRUGS (1)
  1. TOUJEO [Suspect]
     Active Substance: INSULIN GLARGINE

REACTIONS (9)
  - Spinal pain [None]
  - Blood pressure increased [None]
  - Blood glucose increased [None]
  - Tremor [None]
  - Arthralgia [None]
  - Confusional state [None]
  - Blood glucose decreased [None]
  - Headache [None]
  - Glycosylated haemoglobin increased [None]
